FAERS Safety Report 6692882-8 (Version None)
Quarter: 2010Q2

REPORT INFORMATION
  Report Type: 
  Country: None (occurrence: None)
  Receive Date: 20100419
  Receipt Date: 20100402
  Transmission Date: 20101027
  Serious: Yes (Other)
  Sender: FDA-Public Use
  Company Number: AUR-APL-2010-00990

PATIENT
  Age: 35 Year
  Sex: Male
  Weight: 92.5338 kg

DRUGS (7)
  1. TOPIRAMATE [Suspect]
  2. NARDIL [Suspect]
     Indication: MAJOR DEPRESSION
     Dosage: 15MG, 6 X DAY, ORAL
     Route: 048
  3. LEXAPRO [Concomitant]
  4. WELLBUTRIN [Concomitant]
  5. AMITRIPTYLINE [Concomitant]
  6. IMIPRAMINE [Concomitant]
  7. HYDROCHLOROTHIAZIDE [Concomitant]

REACTIONS (2)
  - MENTAL IMPAIRMENT [None]
  - WEIGHT LOSS POOR [None]
